FAERS Safety Report 6453911-X (Version None)
Quarter: 2009Q4

REPORT INFORMATION
  Report Type: 
  Country: None (occurrence: None)
  Receive Date: 20091124
  Receipt Date: 20091117
  Transmission Date: 20100525
  Serious: Yes (Hospitalization, Disabling, Other)
  Sender: FDA-Public Use
  Company Number: US-PFIZER INC-2009300038

PATIENT
  Sex: Male
  Weight: 75.283 kg

DRUGS (4)
  1. XALATAN [Suspect]
     Indication: GLAUCOMA
     Dosage: 1 DROP IN EACH EYE DAILY
     Route: 047
  2. DIAZEPAM [Concomitant]
     Dosage: UNK
  3. ALENDRONATE SODIUM [Concomitant]
     Dosage: UNK
  4. GABAPENTIN [Concomitant]
     Dosage: UNK

REACTIONS (4)
  - BODY HEIGHT DECREASED [None]
  - INTERVERTEBRAL DISC DEGENERATION [None]
  - NON-SMALL CELL LUNG CANCER [None]
  - STAPHYLOCOCCAL INFECTION [None]
